FAERS Safety Report 5418912-9 (Version None)
Quarter: 2007Q3

REPORT INFORMATION
  Report Type: 
  Country: None (occurrence: None)
  Receive Date: 20070718
  Receipt Date: 20060726
  Transmission Date: 20080115
  Serious: Yes (Hospitalization, Disabling)
  Sender: FDA-Public Use
  Company Number: 2006093015

PATIENT
  Age: 33 Year
  Sex: Female

DRUGS (2)
  1. CELEBREX [Suspect]
     Indication: MUSCULOSKELETAL PAIN
     Dosage: 400 MG (200 MG, 2 IN 1 D)
     Dates: start: 20050803, end: 20050903
  2. CELEBREX [Suspect]
     Indication: PAIN IN EXTREMITY
     Dosage: 400 MG (200 MG, 2 IN 1 D)
     Dates: start: 20050803, end: 20050903

REACTIONS (1)
  - CEREBROVASCULAR ACCIDENT [None]
